FAERS Safety Report 4353123-X (Version None)
Quarter: 2004Q2

REPORT INFORMATION
  Report Type: 
  Country: None (occurrence: None)
  Receive Date: 20040429
  Receipt Date: 20040421
  Transmission Date: 20050107
  Serious: Yes (Hospitalization)
  Sender: FDA-Public Use
  Company Number: 2004SE02254

PATIENT
  Age: 79 Year
  Sex: Male
  Weight: 70 kg

DRUGS (13)
  1. ZOLADEX [Suspect]
     Indication: PROSTATE CANCER
     Dosage: 3.6 MG Q4WK SQ
     Route: 058
     Dates: start: 19990629
  2. ANDROCUR [Suspect]
     Indication: PROSTATE CANCER
     Dosage: 200 MG DAILY PO
     Route: 048
     Dates: start: 19990629
  3. EMCONCOR [Concomitant]
  4. PREDNISOLONE [Concomitant]
  5. TRABONA [Concomitant]
  6. MYOCRISIN [Concomitant]
  7. ZOCOR [Concomitant]
  8. FURESIS [Concomitant]
  9. TAZOCIN [Concomitant]
  10. ORLOC [Concomitant]
  11. NO MATCH [Concomitant]
  12. PARATABS [Concomitant]
  13. OXANEST [Concomitant]

REACTIONS (3)
  - FALL [None]
  - PUBIC RAMI FRACTURE [None]
  - VERTIGO [None]
